FAERS Safety Report 6054195-7 (Version None)
Quarter: 2009Q1

REPORT INFORMATION
  Report Type: 
  Country: None (occurrence: None)
  Receive Date: 20090127
  Receipt Date: 20090120
  Transmission Date: 20090719
  Serious: Yes (Hospitalization)
  Sender: FDA-Public Use
  Company Number: US-ELI_LILLY_AND_COMPANY-US200808004685

PATIENT
  Sex: Male

DRUGS (9)
  1. BYETTA [Suspect]
     Dosage: 10 UG, 2/D
     Route: 058
     Dates: start: 20070409, end: 20071204
  2. GLIMEPIRIDE [Concomitant]
     Dosage: 4 MG, DAILY (1/D)
     Route: 048
  3. LIPITOR [Concomitant]
     Dosage: 20 MG, DAILY (1/D)
     Route: 048
  4. REQUIP [Concomitant]
     Dosage: 2 MG, DAILY (1/D)
     Route: 048
  5. AVAPRO [Concomitant]
     Dosage: 150 MG, DAILY (1/D)
     Route: 048
  6. ASPIRIN                                 /SCH/ [Concomitant]
     Dosage: 81 MG, DAILY (1/D)
     Route: 048
  7. PROTONIX [Concomitant]
     Dosage: 40 MG, DAILY (1/D)
     Route: 048
  8. METFORMIN HCL [Concomitant]
     Dosage: UNK, 2/D
     Route: 048
  9. ADVIL LIQUI-GELS [Concomitant]
     Dosage: UNK, AS NEEDED

REACTIONS (1)
  - PANCREATITIS [None]
